FAERS Safety Report 4825243-4 (Version None)
Quarter: 2005Q4

REPORT INFORMATION
  Report Type: 
  Country: None (occurrence: None)
  Receive Date: 20051109
  Receipt Date: 20051109
  Transmission Date: 20060501
  Serious: Yes (Hospitalization)
  Sender: FDA-Public Use
  Company Number: None

PATIENT
  Sex: Female

DRUGS (1)
  1. FLUOROURACIL [Suspect]
     Indication: BREAST CANCER
     Dates: start: 20050714, end: 20050727

REACTIONS (6)
  - HYPOCALCAEMIA [None]
  - HYPOKALAEMIA [None]
  - HYPOPHOSPHATAEMIA [None]
  - MUCOSAL INFLAMMATION [None]
  - NEUTROPENIA [None]
  - THROMBOCYTOPENIA [None]
